FAERS Safety Report 23897384 (Version 1)
Quarter: 2024Q2

REPORT INFORMATION
  Report Type: Report from Study
  Country: US (occurrence: US)
  Receive Date: 20240524
  Receipt Date: 20240524
  Transmission Date: 20240716
  Serious: Yes (Other)
  Sender: FDA-Public Use
  Company Number: US-ABBVIE-5771167

PATIENT
  Sex: Female

DRUGS (1)
  1. SKYRIZI [Suspect]
     Active Substance: RISANKIZUMAB-RZAA
     Indication: Psoriatic arthropathy
     Route: 058
     Dates: start: 20221020

REACTIONS (4)
  - Cystocele [Unknown]
  - Drug ineffective [Not Recovered/Not Resolved]
  - Post procedural infection [Unknown]
  - Pain [Unknown]

NARRATIVE: CASE EVENT DATE: 20230101
